FAERS Safety Report 19706723 (Version 1)
Quarter: 2021Q3

REPORT INFORMATION
  Report Type: Spontaneous
  Country: FR (occurrence: FR)
  Receive Date: 20210817
  Receipt Date: 20210817
  Transmission Date: 20211014
  Serious: Yes (Other)
  Sender: FDA-Public Use
  Company Number: NVSC2021FR181546

PATIENT
  Age: 12 Year
  Sex: Male
  Weight: 44 kg

DRUGS (5)
  1. SPECIAFOLDINE [Concomitant]
     Active Substance: FOLIC ACID
     Indication: ANAEMIA PROPHYLAXIS
     Dosage: 1 DF, QW
     Route: 048
     Dates: start: 20190912
  2. SOLUPRED [Concomitant]
     Indication: STILL^S DISEASE
     Dosage: 30 MG, QD
     Route: 048
     Dates: start: 20210409
  3. ILARIS [Suspect]
     Active Substance: CANAKINUMAB
     Indication: STILL^S DISEASE
     Dosage: 150 MG, 4W
     Route: 058
     Dates: start: 20210309, end: 202107
  4. CORTANCYL [Concomitant]
     Active Substance: PREDNISONE
     Indication: STILL^S DISEASE
     Dosage: 1 DF (SI CRISE)
     Route: 048
     Dates: start: 20210526
  5. SOLU?MEDROL [Concomitant]
     Active Substance: METHYLPREDNISOLONE SODIUM SUCCINATE
     Indication: STILL^S DISEASE
     Dosage: 700 MG (3 BOLUS DE 700 MG)
     Route: 040
     Dates: start: 20210409, end: 20210409

REACTIONS (1)
  - Cutaneous vasculitis [Recovering/Resolving]

NARRATIVE: CASE EVENT DATE: 20210721
